FAERS Safety Report 4432348-9 (Version None)
Quarter: 2004Q3

REPORT INFORMATION
  Report Type: 
  Country: None (occurrence: None)
  Receive Date: 20040825
  Receipt Date: 20040817
  Transmission Date: 20050211
  Serious: Yes (Death, Other)
  Sender: FDA-Public Use
  Company Number: IL-BRISTOL-MYERS SQUIBB COMPANY-12673711

PATIENT

DRUGS (5)
  1. CARMUSTINE [Suspect]
     Indication: MALIGNANT MELANOMA
     Route: 042
  2. CISPLATIN [Suspect]
     Indication: MALIGNANT MELANOMA
     Dosage: DAYS 1-3
     Route: 042
  3. TAMOXIFEN CITRATE [Suspect]
     Indication: MALIGNANT MELANOMA
  4. DTIC-DOME [Suspect]
     Indication: MALIGNANT MELANOMA
     Dosage: DAYS 1-3
     Route: 042
  5. INTERFERON ALFA-2B [Suspect]
     Indication: MALIGNANT MELANOMA
     Dosage: DOSE VALUE: 6X10^6 U/M2
     Route: 058

REACTIONS (6)
  - ANAEMIA [None]
  - NAUSEA [None]
  - NEPHROPATHY TOXIC [None]
  - NEUTROPENIC SEPSIS [None]
  - THROMBOCYTOPENIA [None]
  - VOMITING [None]
